FAERS Safety Report 23226781 (Version 1)
Quarter: 2023Q4

REPORT INFORMATION
  Report Type: Report from Study
  Country: GB (occurrence: GB)
  Receive Date: 20231124
  Receipt Date: 20231124
  Transmission Date: 20240109
  Serious: Yes (Other)
  Sender: FDA-Public Use
  Company Number: GB-002147023-NVSC2022GB263337

PATIENT
  Age: 38 Year
  Sex: Female

DRUGS (1)
  1. KESIMPTA [Suspect]
     Active Substance: OFATUMUMAB
     Indication: Multiple sclerosis
     Dosage: UNK
     Route: 065
     Dates: start: 20221118

REACTIONS (11)
  - Anal abscess [Unknown]
  - Pain [Recovered/Resolved]
  - Chills [Recovered/Resolved]
  - Headache [Recovered/Resolved]
  - COVID-19 [Recovered/Resolved]
  - Fatigue [Recovered/Resolved]
  - Skin irritation [Recovered/Resolved]
  - Nasopharyngitis [Recovered/Resolved]
  - Rhinorrhoea [Unknown]
  - Dysphonia [Unknown]
  - Productive cough [Unknown]

NARRATIVE: CASE EVENT DATE: 20221118
